FAERS Safety Report 4315117-X (Version None)
Quarter: 2004Q1

REPORT INFORMATION
  Report Type: 
  Country: None (occurrence: None)
  Receive Date: 20040310
  Receipt Date: 20040102
  Transmission Date: 20041129
  Serious: Yes (Hospitalization)
  Sender: FDA-Public Use
  Company Number: DE-BRISTOL-MYERS SQUIBB COMPANY-12468120

PATIENT
  Age: 56 Year
  Sex: Female

DRUGS (2)
  1. COAPROVEL TABS 300MG/12.5MG [Suspect]
     Indication: HYPERTENSION
     Dosage: TABLET PR- 312.5MG QD
     Route: 048
     Dates: start: 20030717
  2. DICLAC [Concomitant]
     Dates: end: 20030101

REACTIONS (1)
  - KNEE ARTHROPLASTY [None]
